FAERS Safety Report 10068090 (Version 1)
Quarter: 2014Q2

REPORT INFORMATION
  Report Type: Report from Study
  Country: US (occurrence: US)
  Receive Date: 20140409
  Receipt Date: 20140409
  Transmission Date: 20141212
  Serious: Yes (Other)
  Sender: FDA-Public Use
  Company Number: US-BAYER-2014-050419

PATIENT
  Age: 74 Year
  Sex: Female

DRUGS (5)
  1. BETASERON [Suspect]
     Indication: MULTIPLE SCLEROSIS
     Dosage: 2 MIU, QOD
     Route: 058
     Dates: start: 20140329
  2. COUMADIN [Suspect]
     Indication: ATRIAL FIBRILLATION
     Dosage: UNK
     Dates: start: 2010
  3. BAYER ASPIRIN REGIMEN REGULAR 325 MG STRENGTH [Suspect]
  4. GABAPENTIN [Concomitant]
  5. ALEVE [Concomitant]

REACTIONS (3)
  - International normalised ratio increased [Not Recovered/Not Resolved]
  - Somnolence [Recovered/Resolved]
  - Insomnia [Recovered/Resolved]
